FAERS Safety Report 12822141 (Version 1)
Quarter: 2016Q4

REPORT INFORMATION
  Report Type: Spontaneous
  Country: SG (occurrence: SG)
  Receive Date: 20161007
  Receipt Date: 20161007
  Transmission Date: 20170207
  Serious: Yes (Hospitalization, Other)
  Sender: FDA-Public Use
  Company Number: SG-ALEMBIC PHARMACUETICALS LIMITED-2016SCAL000799

PATIENT

DRUGS (3)
  1. METRONIDAZOLE. [Suspect]
     Active Substance: METRONIDAZOLE
     Indication: ABDOMINAL INFECTION
     Dosage: 400 MG, TID
  2. CIPROFLOXACIN. [Concomitant]
     Active Substance: CIPROFLOXACIN
     Indication: ABDOMINAL INFECTION
     Dosage: 500 MG, BID (COMBINATION OF BOTH ORAL AND PARENTRAL)
     Route: 048
  3. CIPROFLOXACIN. [Concomitant]
     Active Substance: CIPROFLOXACIN
     Indication: ABDOMINAL INFECTION
     Dosage: 500 MG, BID (COMBINATION OF BOTH ORAL AND PARENTRAL)
     Route: 051

REACTIONS (1)
  - Cerebellar syndrome [Recovering/Resolving]
